FAERS Safety Report 12166671 (Version 3)
Quarter: 2017Q3

REPORT INFORMATION
  Report Type: Spontaneous
  Country: US (occurrence: US)
  Receive Date: 20160310
  Receipt Date: 20170905
  Transmission Date: 20171127
  Serious: Yes (Disabling, Other)
  Sender: FDA-Public Use
  Company Number: US-PFIZER INC-2016135406

PATIENT
  Age: 50 Year
  Sex: Female
  Weight: 81.63 kg

DRUGS (12)
  1. LYRICA [Suspect]
     Active Substance: PREGABALIN
     Indication: PAIN IN EXTREMITY
  2. LYRICA [Suspect]
     Active Substance: PREGABALIN
     Indication: NEURALGIA
  3. ASPIRIN. [Concomitant]
     Active Substance: ASPIRIN
     Dosage: 81 MG, UNK
  4. PROMETHAZINE [Concomitant]
     Active Substance: PROMETHAZINE\PROMETHAZINE HYDROCHLORIDE
     Indication: NAUSEA
     Dosage: 25 MG, AS NEEDED
  5. CARVEDILOL. [Concomitant]
     Active Substance: CARVEDILOL
     Dosage: 3.125 MG, 2X/DAY
  6. LYRICA [Suspect]
     Active Substance: PREGABALIN
     Indication: SPINAL DISORDER
     Dosage: 300 MG, 2X/DAY (ONE IN MORNING , ONE AT NIGHT)
     Route: 048
     Dates: start: 2005
  7. DIAZEPAM. [Concomitant]
     Active Substance: DIAZEPAM
     Indication: ANXIETY
     Dosage: UNK, AS NEEDED
  8. COREG [Concomitant]
     Active Substance: CARVEDILOL
     Indication: CARDIAC DISORDER
     Dosage: 3.125 MG, 2X/DAY (ONE IN MORNING, ONE AT NIGHT)
     Route: 048
     Dates: start: 201109
  9. VITAMIN D3 [Concomitant]
     Active Substance: CHOLECALCIFEROL
     Indication: ARTHRALGIA
     Dosage: 3000 OR 4000MG A DAY
  10. LYRICA [Suspect]
     Active Substance: PREGABALIN
     Indication: NERVE INJURY
     Dosage: 300 MG, 2X/DAY
     Route: 048
     Dates: start: 200510
  11. ZOMIG [Concomitant]
     Active Substance: ZOLMITRIPTAN
     Indication: MIGRAINE
     Dosage: 5 MG, WHEN SHE HAD BAD MIGRAINE
  12. LEVOTHYROXINE. [Concomitant]
     Active Substance: LEVOTHYROXINE
     Indication: THYROID DISORDER
     Dosage: 50 MG, 1X/DAY
     Dates: start: 201706

REACTIONS (6)
  - Back disorder [Unknown]
  - Hyperaesthesia [Unknown]
  - Spinal column stenosis [Not Recovered/Not Resolved]
  - Limb discomfort [Unknown]
  - Ovarian neoplasm [Recovered/Resolved]
  - Weight increased [Recovering/Resolving]

NARRATIVE: CASE EVENT DATE: 2015
